FAERS Safety Report 16320684 (Version 1)
Quarter: 2019Q2

REPORT INFORMATION
  Report Type: Spontaneous
  Country: CN (occurrence: CN)
  Receive Date: 20190516
  Receipt Date: 20190516
  Transmission Date: 20190711
  Serious: Yes (Other)
  Sender: FDA-Public Use
  Company Number: CN-BAYER-2019-093475

PATIENT
  Age: 95 Year
  Sex: Male
  Weight: 80 kg

DRUGS (2)
  1. OSELTAMIVIR [Concomitant]
     Active Substance: OSELTAMIVIR
  2. AVELOX [Suspect]
     Active Substance: MOXIFLOXACIN HYDROCHLORIDE
     Indication: PNEUMONIA
     Dosage: 400 MG, QD
     Route: 041
     Dates: start: 20190201, end: 20190202

REACTIONS (6)
  - Confusional state [Recovering/Resolving]
  - Mental disorder [Recovering/Resolving]
  - Muscular weakness [None]
  - Irritability [Recovering/Resolving]
  - Agitation [Recovering/Resolving]
  - Incoherent [Recovering/Resolving]

NARRATIVE: CASE EVENT DATE: 20190202
